FAERS Safety Report 12657008 (Version 1)
Quarter: 2016Q3

REPORT INFORMATION
  Report Type: Spontaneous
  Country: US (occurrence: US)
  Receive Date: 20160816
  Receipt Date: 20160816
  Transmission Date: 20161109
  Serious: No
  Sender: FDA-Public Use
  Company Number: US-PERRIGO-16US016428

PATIENT
  Age: 5 Month
  Sex: Female
  Weight: 5.62 kg

DRUGS (2)
  1. LORATADINE. [Suspect]
     Active Substance: LORATADINE
     Indication: EXPOSURE DURING BREAST FEEDING
     Dosage: UNK, SINGLE
     Route: 048
     Dates: start: 20160520, end: 20160520
  2. MULTIVITAMINS, COMBINATIONS [Concomitant]
     Indication: ROUTINE HEALTH MAINTENANCE
     Dosage: UNK
     Route: 065
     Dates: start: 201512

REACTIONS (2)
  - Exposure during breast feeding [Recovered/Resolved]
  - No adverse event [Unknown]

NARRATIVE: CASE EVENT DATE: 20160520
